FAERS Safety Report 7258934-9 (Version None)
Quarter: 2011Q1

REPORT INFORMATION
  Report Type: 
  Country: None (occurrence: None)
  Receive Date: 20110129
  Receipt Date: 20100615
  Transmission Date: 20110831
  Serious: No
  Sender: FDA-Public Use
  Company Number: US-ABBOTT-10P-163-0651283-00

PATIENT
  Age: 58 Year
  Sex: Female

DRUGS (15)
  1. VIT D [Concomitant]
     Indication: BONE DISORDER
     Dosage: 3 OF 2000 IU
  2. HUMIRA [Suspect]
     Indication: RHEUMATOID ARTHRITIS
     Dates: start: 20100507, end: 20100615
  3. CALCIUM W/MAGNESIUM [Concomitant]
     Indication: BONE DISORDER
  4. FOLIC ACID [Concomitant]
     Indication: PROPHYLAXIS
  5. MILK THISTLE EXTRACT [Concomitant]
     Indication: LIVER DISORDER
  6. VIT D [Concomitant]
     Indication: ROUTINE HEALTH MAINTENANCE
  7. GREEN TEA EXTRACT [Concomitant]
     Indication: ROUTINE HEALTH MAINTENANCE
  8. METOPROLOL [Concomitant]
     Indication: CARDIAC DISORDER
  9. VITAMIN B COMPLEX CAP [Concomitant]
     Indication: PRODUCT USED FOR UNKNOWN INDICATION
  10. CAYENNE [Concomitant]
     Indication: WEIGHT DECREASED
  11. VIT C [Concomitant]
     Indication: ROUTINE HEALTH MAINTENANCE
  12. METHOTREXATE [Concomitant]
     Indication: RHEUMATOID ARTHRITIS
     Dosage: 4 TABLETS ONE TIME A WEEK
  13. VICODIN [Concomitant]
     Indication: PAIN
     Dosage: 5/500 AS NEEDED (USUALLY TAKES 1 PER DAY, ALSO HAS 7.5/500 AVAILABLE AS NEEDED)
  14. CYCLOBENZAPRINE [Concomitant]
     Indication: FIBROMYALGIA
     Dosage: 2 AT BEDTIME
  15. ARAVA [Concomitant]
     Indication: RHEUMATOID ARTHRITIS

REACTIONS (9)
  - MALAISE [None]
  - PALPITATIONS [None]
  - PARAESTHESIA [None]
  - HYPERHIDROSIS [None]
  - ASTHENIA [None]
  - DEPRESSION [None]
  - FATIGUE [None]
  - CHROMATURIA [None]
  - BALANCE DISORDER [None]
